FAERS Safety Report 6075346-4 (Version None)
Quarter: 2009Q1

REPORT INFORMATION
  Report Type: 
  Country: None (occurrence: None)
  Receive Date: 20090210
  Receipt Date: 20080923
  Transmission Date: 20090719
  Serious: Yes (Other)
  Sender: FDA-Public Use
  Company Number: PIR00308-1211200891521

PATIENT
  Age: 55 Year
  Sex: Male
  Weight: 188.2428 kg

DRUGS (3)
  1. HIBICLENS [Suspect]
     Indication: RASH PAPULAR
     Dosage: 060;
     Dates: start: 20080923
  2. KETOCONAZOLE [Concomitant]
  3. STERIOD [Concomitant]

REACTIONS (4)
  - DEAFNESS TRANSITORY [None]
  - DEAFNESS UNILATERAL [None]
  - EAR INFECTION [None]
  - OFF LABEL USE [None]
